FAERS Safety Report 9407276 (Version 2)
Quarter: 2013Q4

REPORT INFORMATION
  Report Type: Report from Study
  Country: RO (occurrence: RO)
  Receive Date: 20130718
  Receipt Date: 20131010
  Transmission Date: 20140711
  Serious: Yes (Hospitalization)
  Sender: FDA-Public Use
  Company Number: 2013SP001993

PATIENT
  Age: 34 Year
  Sex: Female
  Weight: 88 kg

DRUGS (3)
  1. SM-13496 [Suspect]
     Indication: BIPOLAR I DISORDER
     Route: 048
     Dates: start: 20110830, end: 20130701
  2. SEROQUEL [Suspect]
     Indication: BIPOLAR I DISORDER
     Route: 048
     Dates: start: 20130702
  3. LITICARB [Suspect]
     Indication: BIPOLAR I DISORDER
     Route: 048
     Dates: start: 20080408

REACTIONS (1)
  - Mania [Recovered/Resolved]
